FAERS Safety Report 7458986-7 (Version None)
Quarter: 2011Q2

REPORT INFORMATION
  Report Type: 
  Country: None (occurrence: None)
  Receive Date: 20110504
  Receipt Date: 20110425
  Transmission Date: 20111010
  Serious: Yes (Death)
  Sender: FDA-Public Use
  Company Number: US-CELGENEUS-163-21880-10110024

PATIENT
  Sex: Male
  Weight: 99.426 kg

DRUGS (32)
  1. REVLIMID [Suspect]
     Dosage: 25 MILLIGRAM
     Route: 048
     Dates: start: 20080801
  2. DEXMETHASONE [Concomitant]
     Dosage: 20 MILLIGRAM
     Route: 048
     Dates: start: 20101201
  3. ASPIRIN [Concomitant]
     Dosage: 325
     Route: 048
  4. MAGIC MOUTHWASH [Concomitant]
     Dosage: 15 MILLILITER
     Route: 048
     Dates: start: 20101006
  5. FUROSEMIDE [Concomitant]
     Indication: SWELLING
     Dosage: 40 MILLIGRAM
     Route: 048
     Dates: start: 20101217
  6. BROMPHENIRAMINE MALEATE + PSEUDOEPHEDRINE HCL [Concomitant]
     Dosage: 12-90MG
     Route: 048
  7. REVLIMID [Suspect]
     Indication: MULTIPLE MYELOMA
     Dosage: 25 MILLIGRAM
     Route: 048
     Dates: start: 20071123
  8. REVLIMID [Suspect]
     Dosage: 15 MILLIGRAM
     Route: 048
     Dates: start: 20090201
  9. PROCRIT [Concomitant]
     Dosage: 40,000-60,000 UNITS
     Route: 051
  10. ZOMETA [Concomitant]
     Route: 065
  11. NORMAL SALINE [Concomitant]
     Route: 065
  12. HUMULIN R [Concomitant]
     Route: 065
     Dates: start: 20100526
  13. PERCOCET [Concomitant]
     Dosage: 5/325MG
     Route: 048
     Dates: start: 20110106
  14. PREDNISONE TAB [Concomitant]
     Dosage: 20 MILLIGRAM
     Route: 048
     Dates: start: 20101122
  15. ALLOPURINOL [Concomitant]
     Dosage: 300
     Route: 048
     Dates: start: 20091222
  16. NEURONTIN [Concomitant]
     Dosage: 400 MILLIGRAM
     Route: 048
     Dates: start: 20100923
  17. RED BLOOD CELLS [Concomitant]
     Route: 065
  18. VELCADE [Concomitant]
     Dosage: 2.4 MILLIGRAM
     Route: 051
  19. LOPRESSOR [Concomitant]
     Dosage: 50
     Route: 048
  20. VITAMIN D [Concomitant]
     Dosage: 1000
     Route: 048
  21. CLOTRIMAZOLE AND BETAMETHASONE DIPROPIONATE [Concomitant]
     Dosage: 1-0.05%
     Route: 061
     Dates: start: 20101103
  22. FUROSEMIDE [Concomitant]
     Dosage: 20 MILLIGRAM
     Route: 051
  23. CHERATUSSIN AC [Concomitant]
     Indication: COUGH
     Dosage: 10 MILLILITER
     Route: 048
     Dates: start: 20101216
  24. STOOL SOFTENER LAXATIVE [Concomitant]
     Dosage: 8.6-50MG
     Route: 048
  25. DEXMETHASONE [Concomitant]
     Dosage: 4 MILLIGRAM
     Route: 048
     Dates: start: 20101213, end: 20101201
  26. PANTOPRAZOLE [Concomitant]
     Dosage: 40
     Route: 048
  27. PROCHLORPERAZINE TAB [Concomitant]
     Indication: NAUSEA
     Dosage: 10 MILLIGRAM
     Route: 048
     Dates: start: 20100928
  28. AIRBORNE [Concomitant]
     Dosage: 1 DOSAGE FORMS
     Route: 065
  29. PLATELETS [Concomitant]
     Route: 065
  30. ZOFRAN [Concomitant]
     Dosage: 8 MILLIGRAM
     Route: 051
  31. MELPHALAN [Concomitant]
     Dosage: 8 MILLIGRAM
     Route: 065
  32. DIOVAN [Concomitant]
     Dosage: 80
     Route: 048

REACTIONS (4)
  - MULTIPLE MYELOMA [None]
  - EPISTAXIS [None]
  - CONFUSIONAL STATE [None]
  - DRUG INEFFECTIVE [None]
